FAERS Safety Report 5282192-8 (Version None)
Quarter: 2007Q1

REPORT INFORMATION
  Report Type: 
  Country: None (occurrence: None)
  Receive Date: 20070330
  Receipt Date: 20070321
  Transmission Date: 20070707
  Serious: Yes (Hospitalization, Other)
  Sender: FDA-Public Use
  Company Number: PL-PFIZER INC-2007016327

PATIENT
  Sex: Female
  Weight: 82 kg

DRUGS (2)
  1. XANAX [Suspect]
     Indication: NERVOUSNESS
     Route: 048
     Dates: start: 20060101, end: 20070228
  2. TULIP [Concomitant]
     Route: 048

REACTIONS (6)
  - BACK PAIN [None]
  - CHEST PAIN [None]
  - HYPERTENSION [None]
  - LEUKOPENIA [None]
  - NEUTROPENIA [None]
  - OBESITY [None]
